FAERS Safety Report 26011432 (Version 1)
Quarter: 2025Q4

REPORT INFORMATION
  Report Type: Report from Study
  Country: US (occurrence: US)
  Receive Date: 20251107
  Receipt Date: 20251107
  Transmission Date: 20260118
  Serious: Yes (Hospitalization)
  Sender: ABBVIE
  Company Number: US-ABBVIE-6533096

PATIENT
  Age: 90 Year
  Sex: Female

DRUGS (1)
  1. SKYRIZI [Suspect]
     Active Substance: RISANKIZUMAB-RZAA
     Indication: Product used for unknown indication
     Route: 058
     Dates: start: 20241003

REACTIONS (3)
  - Respiratory disorder [Not Recovered/Not Resolved]
  - Rehabilitation therapy [Not Recovered/Not Resolved]
  - Living in residential institution [Not Recovered/Not Resolved]

NARRATIVE: CASE EVENT DATE: 20251001
